FAERS Safety Report 12435854 (Version 1)
Quarter: 2016Q2

REPORT INFORMATION
  Report Type: Spontaneous
  Country: JP (occurrence: JP)
  Receive Date: 20160603
  Receipt Date: 20160603
  Transmission Date: 20160815
  Serious: Yes (Other)
  Sender: FDA-Public Use
  Company Number: JP-JNJFOC-20150919353

PATIENT

DRUGS (2)
  1. ACETAMINOPHEN. [Suspect]
     Active Substance: ACETAMINOPHEN
     Route: 065
  2. ACETAMINOPHEN. [Suspect]
     Active Substance: ACETAMINOPHEN
     Indication: PRODUCT USED FOR UNKNOWN INDICATION
     Dosage: 2.4-4.0 G/D
     Route: 065

REACTIONS (15)
  - Pancytopenia [Unknown]
  - Interstitial lung disease [Unknown]
  - Gastrointestinal disorder [Unknown]
  - Nausea [Unknown]
  - Hyponatraemia [Unknown]
  - Insomnia [Unknown]
  - Blood creatinine increased [Unknown]
  - Gastric neoplasm [Unknown]
  - Constipation [Unknown]
  - Drug-induced liver injury [Unknown]
  - Hepatic function abnormal [Unknown]
  - Pyrexia [Unknown]
  - Diarrhoea [Unknown]
  - Hepatic steatosis [Unknown]
  - Abdominal discomfort [Unknown]
